FAERS Safety Report 14325620 (Version 2)
Quarter: 2018Q1

REPORT INFORMATION
  Report Type: Spontaneous
  Country: DE (occurrence: DE)
  Receive Date: 20171226
  Receipt Date: 20180117
  Transmission Date: 20180509
  Serious: Yes (Hospitalization, Other)
  Sender: FDA-Public Use
  Company Number: PHHY2017DE189530

PATIENT
  Age: 76 Year
  Sex: Female
  Weight: 85 kg

DRUGS (2)
  1. CARVEDILOL 1A PHARMA [Suspect]
     Active Substance: CARVEDILOL
     Indication: PRODUCT USED FOR UNKNOWN INDICATION
     Dosage: 1 DF, BID
     Route: 065
  2. NIFEDIPINE. [Suspect]
     Active Substance: NIFEDIPINE
     Indication: PRODUCT USED FOR UNKNOWN INDICATION
     Dosage: 5 MG, UNK
     Route: 065

REACTIONS (4)
  - Nasopharyngitis [Unknown]
  - Hypertension [Unknown]
  - Therapeutic response decreased [Unknown]
  - Arrhythmia [Unknown]

NARRATIVE: CASE EVENT DATE: 2017
